FAERS Safety Report 4627583-0 (Version None)
Quarter: 2005Q2

REPORT INFORMATION
  Report Type: 
  Country: None (occurrence: None)
  Receive Date: 20050405
  Receipt Date: 20050322
  Transmission Date: 20051028
  Serious: Yes (Other)
  Sender: FDA-Public Use
  Company Number: HQWYE333524MAR05

PATIENT
  Age: 75 Year
  Sex: Male
  Weight: 80.9 kg

DRUGS (5)
  1. MYLOTARG [Suspect]
     Indication: ACUTE MYELOID LEUKAEMIA
     Dosage: INTRAVENOUS
     Route: 042
     Dates: start: 20050202, end: 20050202
  2. SERTRALINE (SERTRALINE) [Concomitant]
  3. CAPTOPRIL [Concomitant]
  4. DOCUSATE (DOCUSATE) [Concomitant]
  5. FUROSEMIDE [Concomitant]

REACTIONS (4)
  - ALANINE AMINOTRANSFERASE INCREASED [None]
  - ASPARTATE AMINOTRANSFERASE INCREASED [None]
  - CHEST PAIN [None]
  - HYPOTENSION [None]
